FAERS Safety Report 17211052 (Version 6)
Quarter: 2020Q2

REPORT INFORMATION
  Report Type: Report from Study
  Country: None (occurrence: CO)
  Receive Date: 20191228
  Receipt Date: 20200520
  Transmission Date: 20200713
  Serious: Yes (Other)
  Sender: FDA-Public Use
  Company Number: CO-ABBVIE-19K-036-3212027-00

PATIENT
  Age: 69 Year
  Sex: Female
  Weight: 58 kg

DRUGS (3)
  1. HUMIRA [Suspect]
     Active Substance: ADALIMUMAB
     Indication: RHEUMATOID ARTHRITIS
     Route: 058
     Dates: start: 20140827
  2. HUMIRA [Suspect]
     Active Substance: ADALIMUMAB
     Indication: RHEUMATOID ARTHRITIS
     Route: 058
     Dates: end: 20191206
  3. EUTIROX [Concomitant]
     Active Substance: LEVOTHYROXINE SODIUM
     Indication: HYPOTHYROIDISM
     Route: 048

REACTIONS (12)
  - Laryngitis [Recovering/Resolving]
  - Deafness [Recovering/Resolving]
  - Immunosuppression [Unknown]
  - Influenza like illness [Recovered/Resolved]
  - Weight decreased [Unknown]
  - Dysphonia [Recovering/Resolving]
  - Ear congestion [Recovering/Resolving]
  - Tonsillolith [Not Recovered/Not Resolved]
  - Influenza [Recovered/Resolved]
  - Rhinorrhoea [Recovering/Resolving]
  - Productive cough [Not Recovered/Not Resolved]
  - Asthenia [Unknown]

NARRATIVE: CASE EVENT DATE: 2016
